FAERS Safety Report 7029348-1 (Version None)
Quarter: 2010Q4

REPORT INFORMATION
  Report Type: 
  Country: None (occurrence: None)
  Receive Date: 20101005
  Receipt Date: 20100924
  Transmission Date: 20110411
  Serious: Yes (Other)
  Sender: FDA-Public Use
  Company Number: PHHO2010US14361

PATIENT
  Sex: Female
  Weight: 66.2 kg

DRUGS (5)
  1. AFINITOR [Suspect]
     Indication: MALIGNANT NEOPLASM OF AMPULLA OF VATER
     Dosage: 5 MG
     Route: 048
     Dates: start: 20100520, end: 20100618
  2. GEMCITABINE COMPARATOR COMP-GEM+ [Suspect]
     Indication: MALIGNANT NEOPLASM OF AMPULLA OF VATER
     Dosage: 800 MG
     Route: 042
     Dates: start: 20090801, end: 20100201
  3. CISPLATIN COMP-CIS+ [Suspect]
     Indication: MALIGNANT NEOPLASM OF AMPULLA OF VATER
     Dosage: 25 MG
     Route: 042
     Dates: start: 20090201, end: 20090601
  4. DEXAMETHASONE [Concomitant]
  5. CHONDROITIN W/GLUCOSAMINE [Concomitant]

REACTIONS (2)
  - PULMONARY EMBOLISM [None]
  - VENOUS THROMBOSIS LIMB [None]
